FAERS Safety Report 6164776-8 (Version None)
Quarter: 2009Q2

REPORT INFORMATION
  Report Type: 
  Country: None (occurrence: None)
  Receive Date: 20090423
  Receipt Date: 20090414
  Transmission Date: 20091009
  Serious: Yes (Other)
  Sender: FDA-Public Use
  Company Number: CH-ELI_LILLY_AND_COMPANY-CH200903006612

PATIENT
  Age: 52 Year
  Sex: Male
  Weight: 80 kg

DRUGS (7)
  1. ALIMTA [Suspect]
     Indication: LUNG NEOPLASM MALIGNANT
     Dosage: 1000 MG, UNKNOWN
     Route: 042
     Dates: start: 20081230
  2. FRAGMIN [Concomitant]
     Indication: DEEP VEIN THROMBOSIS
     Dosage: 1500 UNK, UNK
     Route: 058
     Dates: start: 20081020
  3. FENTANYL [Concomitant]
     Indication: PAIN
     Dosage: 100 UG, EVERY HOUR
     Route: 062
     Dates: start: 20081002
  4. ASPIRIN [Concomitant]
     Indication: ANTICOAGULANT THERAPY
     Dosage: 100 MG, DAILY (1/D)
     Route: 048
     Dates: start: 20081114
  5. FOLIC ACID [Concomitant]
     Indication: SUPPLEMENTATION THERAPY
     Dosage: 1 MG, DAILY (1/D)
     Route: 048
     Dates: start: 20081222
  6. VITAMIN B-12 [Concomitant]
     Indication: SUPPLEMENTATION THERAPY
     Dosage: 1000 UG, UNK
     Dates: start: 20081222
  7. DEXAMETHASONE 4MG TAB [Concomitant]
     Indication: SUPPLEMENTATION THERAPY
     Dosage: 4 MG, 2/D
     Dates: start: 20081229

REACTIONS (1)
  - PANCREATITIS ACUTE [None]
